FAERS Safety Report 8105746-X (Version None)
Quarter: 2012Q1

REPORT INFORMATION
  Report Type: 
  Country: None (occurrence: None)
  Receive Date: 20120201
  Receipt Date: 20120123
  Transmission Date: 20120608
  Serious: Yes (Hospitalization)
  Sender: FDA-Public Use
  Company Number: AT-ASTRAZENECA-2011SE70524

PATIENT
  Age: 59 Year
  Sex: Female
  Weight: 75 kg

DRUGS (4)
  1. INSULIN [Concomitant]
     Indication: DIABETES MELLITUS
  2. BRILIQUE [Suspect]
     Indication: ACUTE MYOCARDIAL INFARCTION
     Route: 048
     Dates: start: 20111013, end: 20111114
  3. DIURETICS [Concomitant]
  4. INOTROPES [Concomitant]

REACTIONS (3)
  - RENAL IMPAIRMENT [None]
  - PULMONARY HAEMORRHAGE [None]
  - LARGE INTESTINAL HAEMORRHAGE [None]
